FAERS Safety Report 8014780-X (Version None)
Quarter: 2011Q4

REPORT INFORMATION
  Report Type: 
  Country: None (occurrence: None)
  Receive Date: 20111229
  Receipt Date: 20111219
  Transmission Date: 20120403
  Serious: Yes (Hospitalization)
  Sender: FDA-Public Use
  Company Number: US-GENZYME-FABR-1002309

PATIENT
  Sex: Male
  Weight: 78.6 kg

DRUGS (1)
  1. FABRAZYME [Suspect]
     Indication: FABRY'S DISEASE
     Dosage: 1 MG/KG, Q2W
     Route: 042
     Dates: start: 20030710

REACTIONS (3)
  - HEMIPLEGIA [None]
  - CEREBROVASCULAR ACCIDENT [None]
  - APHONIA [None]
